FAERS Safety Report 10794791 (Version 1)
Quarter: 2015Q1

REPORT INFORMATION
  Report Type: Spontaneous
  Country: US (occurrence: US)
  Receive Date: 20150213
  Receipt Date: 20150213
  Transmission Date: 20150721
  Serious: No
  Sender: FDA-Public Use
  Company Number: US-GLAXOSMITHKLINE-US2015GSK020075

PATIENT
  Age: 91 Year
  Sex: Male

DRUGS (14)
  1. VOTRIENT [Suspect]
     Active Substance: PAZOPANIB HYDROCHLORIDE
     Indication: RENAL CANCER
     Dosage: 600 MG, QD
     Route: 048
     Dates: start: 20141110
  2. MIRTAZAPINE. [Concomitant]
     Active Substance: MIRTAZAPINE
  3. AMIODARONE [Concomitant]
     Active Substance: AMIODARONE
  4. CLOPIDOGREL [Concomitant]
     Active Substance: CLOPIDOGREL BISULFATE
  5. ONDANSETRON [Concomitant]
     Active Substance: ONDANSETRON
  6. VOTRIENT [Suspect]
     Active Substance: PAZOPANIB HYDROCHLORIDE
     Dosage: 400 MG, QD
     Route: 048
  7. JALYN [Concomitant]
     Active Substance: DUTASTERIDE\TAMSULOSIN HYDROCHLORIDE
  8. LEVOTHYROXINE [Concomitant]
     Active Substance: LEVOTHYROXINE
  9. BENZONATATE. [Concomitant]
     Active Substance: BENZONATATE
  10. MULTIVITAMIN [Concomitant]
     Active Substance: VITAMINS
  11. FISH OIL [Concomitant]
     Active Substance: FISH OIL
  12. IRON [Concomitant]
     Active Substance: IRON
  13. NEXIUM [Concomitant]
     Active Substance: ESOMEPRAZOLE MAGNESIUM
  14. METRONIDAZOLE. [Concomitant]
     Active Substance: METRONIDAZOLE

REACTIONS (3)
  - Dehydration [Recovering/Resolving]
  - Dysgeusia [Not Recovered/Not Resolved]
  - Diarrhoea [Unknown]

NARRATIVE: CASE EVENT DATE: 20141124
